FAERS Safety Report 17949099 (Version 1)
Quarter: 2020Q2

REPORT INFORMATION
  Report Type: Spontaneous
  Country: US (occurrence: US)
  Receive Date: 20200625
  Receipt Date: 20200625
  Transmission Date: 20200714
  Serious: No
  Sender: FDA-Public Use
  Company Number: US-ROCHE-2465231

PATIENT
  Age: 38 Year
  Sex: Female

DRUGS (8)
  1. LAMICTAL [Concomitant]
     Active Substance: LAMOTRIGINE
     Route: 065
  2. KLONOPIN [Suspect]
     Active Substance: CLONAZEPAM
     Indication: AGITATION
     Dosage: AT LUNCHTIME AND BEDTIME
     Route: 065
     Dates: start: 2000
  3. TYLENOL WITH CODEINE [Concomitant]
     Active Substance: ACETAMINOPHEN\CODEINE PHOSPHATE
     Dosage: LUNCH TIME AND DINNER TIME.
     Route: 065
     Dates: start: 2000
  4. FLONASE [Concomitant]
     Active Substance: FLUTICASONE PROPIONATE
     Route: 065
  5. ENBREL [Concomitant]
     Active Substance: ETANERCEPT
     Indication: PSORIASIS
     Route: 065
  6. EFFEXOR [Concomitant]
     Active Substance: VENLAFAXINE HYDROCHLORIDE
     Indication: DEPRESSED MOOD
     Route: 065
  7. RESTORIL [Concomitant]
     Active Substance: TEMAZEPAM
     Route: 065
     Dates: start: 20131016
  8. LAMICTAL [Concomitant]
     Active Substance: LAMOTRIGINE
     Dosage: AT BEDTIME,
     Route: 065

REACTIONS (1)
  - Pregnancy [Unknown]
